FAERS Safety Report 5363484-0 (Version None)
Quarter: 2007Q2

REPORT INFORMATION
  Report Type: 
  Country: None (occurrence: None)
  Receive Date: 20070620
  Receipt Date: 20070611
  Transmission Date: 20071010
  Serious: Yes (Other)
  Sender: FDA-Public Use
  Company Number: CA-ROCHE-502296

PATIENT
  Age: 76 Year
  Sex: Male
  Weight: 95 kg

DRUGS (5)
  1. XELODA [Suspect]
     Indication: DRUG USE FOR UNKNOWN INDICATION
     Route: 048
  2. ATENOLOL [Concomitant]
  3. LIPITOR [Concomitant]
  4. WARFARIN SODIUM [Concomitant]
  5. ZOPICLONE [Concomitant]

REACTIONS (5)
  - DIARRHOEA [None]
  - MUCOSAL INFLAMMATION [None]
  - PENIS DISORDER [None]
  - SKIN DISCOLOURATION [None]
  - VOMITING [None]
